FAERS Safety Report 24564512 (Version 2)
Quarter: 2024Q4

REPORT INFORMATION
  Report Type: Report from Study
  Country: US (occurrence: US)
  Receive Date: 20241030
  Receipt Date: 20241230
  Transmission Date: 20250115
  Serious: Yes (Other)
  Sender: NOVARTIS
  Company Number: US-002147023-NVSC2024US208326

PATIENT
  Sex: Female

DRUGS (1)
  1. KESIMPTA [Suspect]
     Active Substance: OFATUMUMAB
     Indication: Product used for unknown indication
     Dosage: 20 MG, QMO
     Route: 058

REACTIONS (7)
  - Multiple sclerosis relapse [Unknown]
  - Tremor [Unknown]
  - Pain [Unknown]
  - Dysphemia [Unknown]
  - Feeling abnormal [Unknown]
  - Memory impairment [Unknown]
  - Asthenia [Unknown]
